FAERS Safety Report 22622775 (Version 4)
Quarter: 2024Q3

REPORT INFORMATION
  Report Type: Report from Study
  Country: CA (occurrence: CA)
  Receive Date: 20230621
  Receipt Date: 20240911
  Transmission Date: 20241017
  Serious: Yes (Other)
  Sender: JOHNSON AND JOHNSON
  Company Number: CA-JNJFOC-20230464806

PATIENT
  Age: 14 Year
  Sex: Male
  Weight: 59 kg

DRUGS (3)
  1. REMICADE [Suspect]
     Active Substance: INFLIXIMAB
     Indication: Crohn^s disease
     Dosage: LAST INFUSION IN MAY-2023?ON 22-JUN-2023, PATIENT RECEIVED 05TH INFLIXIMAB RECOMBINANT INFUSION OF 1
     Route: 041
     Dates: start: 20230309
  2. REMICADE [Suspect]
     Active Substance: INFLIXIMAB
     Dosage: RE-INDUCING PATIENT WITH 10 MG/KG AT WEEKS 0,1,4 THEN EVERY 4
     Route: 041
     Dates: start: 20230427
  3. REMICADE [Suspect]
     Active Substance: INFLIXIMAB
     Route: 041

REACTIONS (2)
  - Crohn^s disease [Not Recovered/Not Resolved]
  - Off label use [Unknown]

NARRATIVE: CASE EVENT DATE: 20230427
